FAERS Safety Report 15345782 (Version 2)
Quarter: 2018Q3

REPORT INFORMATION
  Report Type: Report from Study
  Country: None (occurrence: US)
  Receive Date: 20180904
  Receipt Date: 20180927
  Transmission Date: 20181010
  Serious: No
  Sender: FDA-Public Use
  Company Number: US-ABBVIE-18K-163-2470124-00

PATIENT
  Age: 34 Year
  Sex: Female
  Weight: 87.62 kg

DRUGS (8)
  1. LORATADINE. [Concomitant]
     Active Substance: LORATADINE
     Indication: SEASONAL ALLERGY
  2. CELEBREX [Concomitant]
     Active Substance: CELECOXIB
     Indication: PAIN
  3. HUMIRA [Suspect]
     Active Substance: ADALIMUMAB
     Route: 058
  4. VITAMIN D [Concomitant]
     Active Substance: CHOLECALCIFEROL
     Indication: BREAST PAIN
  5. LIALDA [Concomitant]
     Active Substance: MESALAMINE
     Indication: COLITIS ULCERATIVE
  6. VITAMIN E [Concomitant]
     Active Substance: .ALPHA.-TOCOPHEROL
     Indication: VITAMIN SUPPLEMENTATION
  7. HUMIRA [Suspect]
     Active Substance: ADALIMUMAB
     Indication: COLITIS ULCERATIVE
     Route: 058
     Dates: start: 201706
  8. IRON [Concomitant]
     Active Substance: IRON
     Indication: ANAEMIA

REACTIONS (9)
  - Uterine enlargement [Not Recovered/Not Resolved]
  - Endometriosis [Unknown]
  - Uterine leiomyoma [Not Recovered/Not Resolved]
  - Protein deficiency [Unknown]
  - Coagulopathy [Unknown]
  - Ovarian cyst [Unknown]
  - Pelvic pain [Not Recovered/Not Resolved]
  - Nausea [Not Recovered/Not Resolved]
  - Back pain [Not Recovered/Not Resolved]

NARRATIVE: CASE EVENT DATE: 2017
